FAERS Safety Report 8548536-6 (Version None)
Quarter: 2012Q3

REPORT INFORMATION
  Report Type: 
  Country: None (occurrence: None)
  Receive Date: 20120730
  Receipt Date: 20120720
  Transmission Date: 20120928
  Serious: Yes (Other)
  Sender: FDA-Public Use
  Company Number: US-BAYER-2010-002083

PATIENT
  Age: 45 Year
  Sex: Female
  Weight: 99.773 kg

DRUGS (3)
  1. YASMIN [Suspect]
     Indication: PRODUCT USED FOR UNKNOWN INDICATION
  2. YAZ [Suspect]
     Indication: PREMENSTRUAL SYNDROME
  3. YAZ [Suspect]
     Indication: MENORRHAGIA
     Dosage: 1 DF, QD
     Dates: start: 20080401, end: 20091201

REACTIONS (2)
  - CHOLELITHIASIS [None]
  - GALLBLADDER INJURY [None]
